FAERS Safety Report 5563636-0 (Version None)
Quarter: 2007Q4

REPORT INFORMATION
  Report Type: 
  Country: None (occurrence: None)
  Receive Date: 20071217
  Receipt Date: 20071210
  Transmission Date: 20080405
  Serious: Yes (Life-Threatening)
  Sender: FDA-Public Use
  Company Number: JP-JNJFOC-20071101564

PATIENT
  Sex: Female

DRUGS (19)
  1. RISPERDAL [Suspect]
     Route: 048
  2. RISPERDAL [Suspect]
     Route: 048
  3. RISPERDAL [Suspect]
     Route: 048
  4. RISPERDAL [Suspect]
     Route: 048
  5. RISPERDAL [Suspect]
     Route: 048
  6. RISPERDAL [Suspect]
     Indication: SCHIZOPHRENIA
     Route: 048
  7. OLANZAPINE [Concomitant]
  8. OLANZAPINE [Concomitant]
     Indication: SCHIZOPHRENIA
  9. PAROXETINE HYDROCHLORIDE HYDRATE [Concomitant]
     Route: 048
  10. PAROXETINE HYDROCHLORIDE HYDRATE [Concomitant]
     Route: 048
  11. PAROXETINE HYDROCHLORIDE HYDRATE [Concomitant]
     Indication: SCHIZOPHRENIA
     Route: 048
  12. ALPRAZOLAM [Concomitant]
     Route: 048
  13. ALPRAZOLAM [Concomitant]
     Route: 048
  14. ALPRAZOLAM [Concomitant]
     Route: 048
  15. ALPRAZOLAM [Concomitant]
     Indication: SCHIZOPHRENIA
     Route: 048
  16. BIPERIDEN HYDROCHLORIDE TAB [Concomitant]
     Indication: DRUG USE FOR UNKNOWN INDICATION
  17. TRIHEXPHENIDYL [Concomitant]
     Indication: DRUG USE FOR UNKNOWN INDICATION
  18. FLUVOXAMINE MALEATE [Concomitant]
     Indication: DRUG USE FOR UNKNOWN INDICATION
  19. MILNACIPRAN HYDROCHLORIDE [Concomitant]
     Indication: DRUG USE FOR UNKNOWN INDICATION

REACTIONS (5)
  - HYPONATRAEMIA [None]
  - HYPOXIC ENCEPHALOPATHY [None]
  - INAPPROPRIATE ANTIDIURETIC HORMONE SECRETION [None]
  - NEUROLEPTIC MALIGNANT SYNDROME [None]
  - RESPIRATORY FAILURE [None]
